FAERS Safety Report 16596646 (Version 2)
Quarter: 2019Q3

REPORT INFORMATION
  Report Type: Spontaneous
  Country: JP (occurrence: JP)
  Receive Date: 20190719
  Receipt Date: 20190801
  Transmission Date: 20191004
  Serious: Yes (Other)
  Sender: FDA-Public Use
  Company Number: JP-TEVA-2019-JP-1081463

PATIENT
  Age: 67 Year
  Sex: Male

DRUGS (5)
  1. 5-FU [Suspect]
     Active Substance: FLUOROURACIL
     Indication: OESOPHAGEAL CARCINOMA
     Dosage: ADMINISTERED ON DAYS 1-5, EVERY 28 DAYS. RECEIVED 5 COURSES.
     Route: 065
  2. CISPLATIN. [Suspect]
     Active Substance: CISPLATIN
     Indication: OESOPHAGEAL CARCINOMA
     Dosage: ADMINISTERED ON DAY 1, EVERY 28 DAYS. RECEIVED 5 COURSES.
     Route: 065
  3. DOCETAXEL. [Suspect]
     Active Substance: DOCETAXEL
     Indication: OESOPHAGEAL CARCINOMA
     Dosage: ON DAY 1, ADMINISTERED EVERY 28 DAYS. RECEIVED 5 COURSES.
     Route: 065
  4. PEGFILGRASTIM [Concomitant]
     Active Substance: PEGFILGRASTIM
     Indication: BONE MARROW FAILURE
     Dosage: ON DAY 6 OF EACH COURSE
     Route: 058
  5. PEGFILGRASTIM [Concomitant]
     Active Substance: PEGFILGRASTIM
     Indication: PROPHYLAXIS

REACTIONS (2)
  - Abdominal pain [Unknown]
  - Decreased appetite [Unknown]
